FAERS Safety Report 20383932 (Version 1)
Quarter: 2022Q1

REPORT INFORMATION
  Report Type: Spontaneous
  Country: PL (occurrence: None)
  Receive Date: 20220127
  Receipt Date: 20220127
  Transmission Date: 20220424
  Serious: Yes (Life-Threatening, Hospitalization)
  Sender: FDA-Public Use
  Company Number: PL-ROCHE-3004752

PATIENT
  Age: 44 Year
  Sex: Male
  Weight: 80 kg

DRUGS (2)
  1. PEGASYS [Suspect]
     Active Substance: PEGINTERFERON ALFA-2A
     Indication: Chronic hepatitis C
     Route: 058
     Dates: start: 20140919, end: 20141123
  2. COPEGUS [Suspect]
     Active Substance: RIBAVIRIN
     Indication: Chronic hepatitis C
     Route: 048
     Dates: start: 20140919, end: 20141123

REACTIONS (9)
  - Pleurisy [Unknown]
  - Lung abscess [Unknown]
  - Pneumonitis [Unknown]
  - Joint abscess [Unknown]
  - Arthritis [Unknown]
  - Pseudomembranous colitis [Unknown]
  - Streptococcal sepsis [Recovering/Resolving]
  - Respiratory failure [Unknown]
  - Joint effusion [Unknown]

NARRATIVE: CASE EVENT DATE: 20141119
